FAERS Safety Report 6478338-6 (Version None)
Quarter: 2009Q4

REPORT INFORMATION
  Report Type: 
  Country: None (occurrence: None)
  Receive Date: 20091202
  Receipt Date: 20091117
  Transmission Date: 20100525
  Serious: Yes (Congenital Anomaly)
  Sender: FDA-Public Use
  Company Number: AUR-APL-2009-01314

PATIENT
  Age: 37 Week
  Sex: Female
  Weight: 3 kg

DRUGS (2)
  1. METFORMIN HCL [Suspect]
     Indication: POLYCYSTIC OVARIES
     Dosage: TRANSPLACENTAL
  2. CLOMID [Concomitant]

REACTIONS (2)
  - CLEFT LIP [None]
  - MATERNAL DRUGS AFFECTING FOETUS [None]
